FAERS Safety Report 19070687 (Version 1)
Quarter: 2021Q1

REPORT INFORMATION
  Report Type: Spontaneous
  Country: CN (occurrence: CN)
  Receive Date: 20210330
  Receipt Date: 20210330
  Transmission Date: 20210420
  Serious: Yes (Hospitalization)
  Sender: FDA-Public Use
  Company Number: CN-JNJFOC-20210340271

PATIENT
  Age: 82 Year
  Sex: Male
  Weight: 65 kg

DRUGS (1)
  1. XARELTO [Suspect]
     Active Substance: RIVAROXABAN
     Indication: THROMBOSIS PROPHYLAXIS
     Dosage: 10 MG, QD
     Route: 048
     Dates: start: 20210226, end: 20210309

REACTIONS (7)
  - Hepatic function abnormal [Recovering/Resolving]
  - Respiratory rate increased [Not Recovered/Not Resolved]
  - Product use in unapproved indication [Unknown]
  - Renal impairment [Recovering/Resolving]
  - Off label use [Unknown]
  - Amylase increased [Recovering/Resolving]
  - Heart rate increased [Recovering/Resolving]

NARRATIVE: CASE EVENT DATE: 20210226
